FAERS Safety Report 9870147 (Version 2)
Quarter: 2014Q1

REPORT INFORMATION
  Report Type: Spontaneous
  Country: FR (occurrence: FR)
  Receive Date: 20140205
  Receipt Date: 20140205
  Transmission Date: 20141002
  Serious: Yes (Life-Threatening, Other)
  Sender: FDA-Public Use
  Company Number: FR-PFIZER INC-2013165206

PATIENT
  Age: 57 Year
  Sex: Female

DRUGS (7)
  1. ENBREL [Suspect]
     Indication: ANKYLOSING SPONDYLITIS
     Dosage: 50 MG, WEEKLY
     Route: 058
     Dates: start: 201101, end: 201305
  2. CELEBREX [Suspect]
     Indication: ARTHRITIS
     Dosage: UNKNOWN
  3. LYRICA [Suspect]
     Dosage: UNK
     Dates: start: 2011
  4. INEXIUM /01479302/ [Suspect]
     Dosage: UNK
  5. DAFALGAN [Suspect]
     Dosage: UNK
  6. LEVOTHYROX [Concomitant]
     Dosage: UNKNOWN
  7. LIVIAL [Concomitant]
     Dosage: UNKNOWN

REACTIONS (2)
  - Malignant melanoma [Recovering/Resolving]
  - Rheumatic disorder [Not Recovered/Not Resolved]
